FAERS Safety Report 25942314 (Version 1)
Quarter: 2025Q4

REPORT INFORMATION
  Report Type: Spontaneous
  Country: US (occurrence: US)
  Receive Date: 20251021
  Receipt Date: 20251021
  Transmission Date: 20260117
  Serious: No
  Sender: Haleon PLC
  Company Number: US-002147023-NVSC2024US067479

PATIENT
  Sex: Male

DRUGS (15)
  1. VOLTAREN ARTHRITIS PAIN [Suspect]
     Active Substance: DICLOFENAC SODIUM
     Indication: Product used for unknown indication
  2. TYLENOL [Concomitant]
     Active Substance: ACETAMINOPHEN
  3. ZOVIRAX [Concomitant]
     Active Substance: ACYCLOVIR
  4. ALBUTEROL [Concomitant]
     Active Substance: ALBUTEROL
  5. LIPITOR [Concomitant]
     Active Substance: ATORVASTATIN CALCIUM
  6. DULCOLAX [Concomitant]
  7. ZYRTEC [Concomitant]
     Active Substance: CETIRIZINE HYDROCHLORIDE
  8. CHLORTHALIDONE [Concomitant]
     Active Substance: CHLORTHALIDONE
  9. CELEXA [Concomitant]
     Active Substance: CITALOPRAM HYDROBROMIDE
  10. VITAMIN B12 [Concomitant]
     Active Substance: CYANOCOBALAMIN
  11. ROBITUSSIN DM [Concomitant]
     Active Substance: DEXTROMETHORPHAN HYDROBROMIDE\GUAIFENESIN
  12. NEXIUM [Concomitant]
     Active Substance: ESOMEPRAZOLE MAGNESIUM
  13. FERROUS SULFATE [Concomitant]
     Active Substance: FERROUS SULFATE
  14. Flonase 50 nasal spray [Concomitant]
  15. VENCLEXTA [Concomitant]
     Active Substance: VENETOCLAX

REACTIONS (1)
  - Urticaria [Unknown]
